FAERS Safety Report 7360047-2 (Version None)
Quarter: 2011Q1

REPORT INFORMATION
  Report Type: 
  Country: None (occurrence: None)
  Receive Date: 20110317
  Receipt Date: 20110311
  Transmission Date: 20110831
  Serious: Yes (Hospitalization, Other)
  Sender: FDA-Public Use
  Company Number: US-PFIZER INC-2006069821

PATIENT
  Sex: Female

DRUGS (3)
  1. NEURONTIN [Suspect]
     Dosage: 300 MG, UNK
     Dates: start: 20020826
  2. NEURONTIN [Suspect]
     Dosage: 600 MG, 1X/DAY
     Dates: start: 20030324
  3. NEURONTIN [Suspect]
     Dosage: 600 TO 1200MG PER DAY
     Dates: start: 20030618

REACTIONS (1)
  - SUICIDE ATTEMPT [None]
